FAERS Safety Report 24247244 (Version 1)
Quarter: 2024Q3

REPORT INFORMATION
  Report Type: Report from Study
  Country: CA (occurrence: CA)
  Receive Date: 20240826
  Receipt Date: 20240826
  Transmission Date: 20241016
  Serious: Yes (Other)
  Sender: SANDOZ
  Company Number: CA-002147023-NVSC2022CA127557

PATIENT
  Sex: Female

DRUGS (2)
  1. HYRIMOZ [Suspect]
     Active Substance: ADALIMUMAB-ADAZ
     Dosage: 40 MG, QW (WEEKLY)
     Route: 058
     Dates: start: 20220507
  2. HYRIMOZ [Suspect]
     Active Substance: ADALIMUMAB-ADAZ
     Indication: Crohn^s disease
     Dosage: 80 MG, WEEKLY
     Route: 058
     Dates: start: 20220507

REACTIONS (12)
  - Crohn^s disease [Unknown]
  - Fibromyalgia [Unknown]
  - Diarrhoea [Unknown]
  - Illness [Unknown]
  - Frustration tolerance decreased [Unknown]
  - Constipation [Unknown]
  - Road traffic accident [Unknown]
  - Pain in extremity [Unknown]
  - Complex regional pain syndrome [Unknown]
  - Product dose omission issue [Unknown]
  - Inappropriate schedule of product administration [Unknown]
  - Off label use [Unknown]
